FAERS Safety Report 7390442-7 (Version None)
Quarter: 2011Q2

REPORT INFORMATION
  Report Type: 
  Country: None (occurrence: None)
  Receive Date: 20110401
  Receipt Date: 20110317
  Transmission Date: 20111010
  Serious: Yes (Other)
  Sender: FDA-Public Use
  Company Number: US-MERCK-1011USA03363

PATIENT
  Age: 77 Year
  Sex: Female

DRUGS (3)
  1. FOSAMAX [Suspect]
     Route: 048
  2. ARIMIDEX [Concomitant]
     Route: 065
  3. FORTEO [Suspect]
     Indication: OSTEOPOROSIS
     Route: 065
     Dates: start: 20100901

REACTIONS (16)
  - OFF LABEL USE [None]
  - FATIGUE [None]
  - PAIN [None]
  - CARPAL TUNNEL SYNDROME [None]
  - CONFUSIONAL STATE [None]
  - PAIN IN EXTREMITY [None]
  - DYSPHONIA [None]
  - FEELING ABNORMAL [None]
  - FEMUR FRACTURE [None]
  - ARTHRALGIA [None]
  - ARTHRITIS [None]
  - BLOOD GLUCOSE INCREASED [None]
  - WRIST FRACTURE [None]
  - ADVERSE EVENT [None]
  - UPPER LIMB FRACTURE [None]
  - INJURY [None]
